FAERS Safety Report 6936690-9 (Version None)
Quarter: 2010Q3

REPORT INFORMATION
  Report Type: 
  Country: None (occurrence: None)
  Receive Date: 20100823
  Receipt Date: 20100813
  Transmission Date: 20110219
  Serious: Yes (Death, Hospitalization, Other)
  Sender: FDA-Public Use
  Company Number: US-AMGEN-US358514

PATIENT
  Sex: Male
  Weight: 80.8 kg

DRUGS (13)
  1. NPLATE [Suspect]
     Indication: IDIOPATHIC THROMBOCYTOPENIC PURPURA
     Route: 058
     Dates: start: 20090605, end: 20090717
  2. AZATHIOPRINE [Suspect]
  3. PREDNISONE [Concomitant]
  4. METFORMIN [Concomitant]
  5. DANAZOL [Concomitant]
  6. PROTONIX [Concomitant]
  7. LEVOTHYROXINE SODIUM [Concomitant]
  8. ANALAPRIL [Concomitant]
  9. LANTUS [Concomitant]
  10. ZETIA [Concomitant]
  11. CLONAZEPAM [Concomitant]
  12. PRAVACHOL [Concomitant]
  13. RISPERDAL [Concomitant]

REACTIONS (3)
  - DEATH [None]
  - DRUG INEFFECTIVE [None]
  - THERAPEUTIC RESPONSE DECREASED [None]
